FAERS Safety Report 8934576 (Version 2)
Quarter: 2022Q1

REPORT INFORMATION
  Report Type: Report from Study
  Country: US (occurrence: None)
  Receive Date: 20121129
  Receipt Date: 20220323
  Transmission Date: 20220423
  Serious: Yes (Hospitalization)
  Sender: FDA-Public Use
  Company Number: US-ROCHE-1156260

PATIENT
  Age: 68 Year
  Sex: Female
  Weight: 83.2 kg

DRUGS (3)
  1. BEVACIZUMAB [Suspect]
     Active Substance: BEVACIZUMAB
     Indication: Malignant peritoneal neoplasm
     Route: 042
     Dates: start: 20101105
  2. CARBOPLATIN [Suspect]
     Active Substance: CARBOPLATIN
     Indication: Malignant peritoneal neoplasm
     Dosage: AUC 5
     Route: 042
     Dates: start: 20101105
  3. PACLITAXEL [Suspect]
     Active Substance: PACLITAXEL
     Indication: Malignant peritoneal neoplasm
     Route: 042
     Dates: start: 20101105

REACTIONS (5)
  - Alanine aminotransferase increased [Recovered/Resolved]
  - Acute kidney injury [Recovered/Resolved]
  - Troponin I increased [Recovered/Resolved]
  - Malaise [Unknown]
  - Blood creatinine increased [Unknown]

NARRATIVE: CASE EVENT DATE: 20121007
